FAERS Safety Report 23710465 (Version 2)
Quarter: 2024Q2

REPORT INFORMATION
  Report Type: Report from Study
  Country: US (occurrence: US)
  Receive Date: 20240405
  Receipt Date: 20240405
  Transmission Date: 20240715
  Serious: Yes (Hospitalization, Other)
  Sender: FDA-Public Use
  Company Number: US-GILEAD-2023-0645420

PATIENT
  Sex: Female

DRUGS (1)
  1. AZTREONAM LYSINE [Suspect]
     Active Substance: AZTREONAM LYSINE
     Indication: Cystic fibrosis
     Dosage: 75 MG, TID (ALTERNATE EVERY OTHER 28 DAYS)
     Route: 065

REACTIONS (3)
  - Pneumonia staphylococcal [Unknown]
  - Influenza [Unknown]
  - Influenza [Unknown]
